FAERS Safety Report 9167016 (Version 1)
Quarter: 2013Q1

REPORT INFORMATION
  Report Type: Spontaneous
  Country: ES (occurrence: ES)
  Receive Date: 20130316
  Receipt Date: 20130316
  Transmission Date: 20140127
  Serious: Yes (Hospitalization)
  Sender: FDA-Public Use
  Company Number: ES-ELI_LILLY_AND_COMPANY-ES201303004512

PATIENT
  Age: 78 Year
  Sex: Female

DRUGS (9)
  1. FORSTEO [Suspect]
     Indication: OSTEOPOROSIS
     Dosage: 20 UG, UNKNOWN
     Route: 058
     Dates: start: 2007, end: 200806
  2. FORSTEO [Suspect]
     Dosage: 20 UG, UNKNOWN
     Route: 058
     Dates: start: 20081023, end: 20081224
  3. FORSTEO [Suspect]
     Dosage: 20 UG, UNKNOWN
     Route: 058
     Dates: start: 20090116
  4. INSULIN [Concomitant]
     Indication: DIABETES MELLITUS
  5. SINTROM [Concomitant]
  6. TRANSDERM [Concomitant]
     Indication: PAIN
  7. SUMADOL [Concomitant]
  8. CALCIUM [Concomitant]
  9. DIGITALIS GLYCOSIDES [Concomitant]

REACTIONS (6)
  - Lung disorder [Unknown]
  - Lower respiratory tract infection [Recovering/Resolving]
  - Respiratory failure [Recovering/Resolving]
  - Toxicity to various agents [Recovering/Resolving]
  - Cough [Recovering/Resolving]
  - Urinary tract infection [Recovered/Resolved]
